FAERS Safety Report 8618474-9 (Version None)
Quarter: 2012Q2

REPORT INFORMATION
  Report Type: 
  Country: None (occurrence: None)
  Receive Date: 20120423
  Receipt Date: 20091008
  Transmission Date: 20120825
  Serious: Yes (Hospitalization, Other)
  Sender: FDA-Public Use
  Company Number: PHEH2009US11913

PATIENT
  Age: 40 Year
  Sex: Female

DRUGS (5)
  1. FOLIC ACID [Concomitant]
  2. EXJADE [Suspect]
     Indication: IRON OVERLOAD
     Dosage: 500 MG DAILY, ORAL
     Route: 048
  3. EXJADE [Suspect]
     Indication: SICKLE CELL ANAEMIA
     Dosage: 500 MG DAILY, ORAL
     Route: 048
  4. EXJADE [Suspect]
     Indication: THALASSAEMIA
     Dosage: 500 MG DAILY, ORAL
     Route: 048
  5. OXYCONTIN [Concomitant]

REACTIONS (3)
  - SICKLE CELL ANAEMIA WITH CRISIS [None]
  - NAUSEA [None]
  - DIARRHOEA [None]
